FAERS Safety Report 9226032 (Version 1)
Quarter: 2013Q1

REPORT INFORMATION
  Report Type: Spontaneous
  Country: US (occurrence: None)
  Receive Date: 20120921
  Receipt Date: 20120921
  Transmission Date: 20140127
  Serious: Yes (Hospitalization)
  Sender: FDA-Public Use
  Company Number: WAES1108USA03313

PATIENT
  Sex: Female

DRUGS (1)
  1. TAB VYTORIN 10-20 MG [Suspect]
     Indication: BLOOD CHOLESTEROL INCREASED
     Dosage: 10MG-20MG/UNK/PO

REACTIONS (1)
  - Pancreatitis [None]
